FAERS Safety Report 26096753 (Version 2)
Quarter: 2025Q4

REPORT INFORMATION
  Report Type: Spontaneous
  Country: CA (occurrence: CA)
  Receive Date: 20251127
  Receipt Date: 20251225
  Transmission Date: 20260118
  Serious: Yes (Death)
  Sender: SPECGX
  Company Number: CA-SPECGX-T202401300

PATIENT

DRUGS (1)
  1. METHADOSE [Suspect]
     Active Substance: METHADONE HYDROCHLORIDE
     Indication: Product used for unknown indication
     Dosage: UNK
     Route: 048

REACTIONS (3)
  - Accidental overdose [Fatal]
  - Accidental exposure to product by child [Fatal]
  - Product storage error [Fatal]
